FAERS Safety Report 24203694 (Version 2)
Quarter: 2024Q3

REPORT INFORMATION
  Report Type: Spontaneous
  Country: DE (occurrence: DE)
  Receive Date: 20240813
  Receipt Date: 20240817
  Transmission Date: 20241016
  Serious: Yes (Other)
  Sender: AUROBINDO
  Company Number: DE-BRISTOL-MYERS SQUIBB COMPANY-2023-153108

PATIENT
  Age: 68 Year
  Sex: Male
  Weight: 75 kg

DRUGS (26)
  1. OXALIPLATIN [Suspect]
     Active Substance: OXALIPLATIN
     Indication: Oesophageal adenocarcinoma
     Dosage: 158 MILLIGRAM (FREQUENCY: Q2S)
     Route: 042
     Dates: start: 20230726
  2. CISPLATIN [Suspect]
     Active Substance: CISPLATIN
     Indication: Oesophageal adenocarcinoma
     Dosage: 158.4 MILLIGRAM, EVERY MONTH
     Route: 042
     Dates: start: 20230726, end: 20230921
  3. CISPLATIN [Suspect]
     Active Substance: CISPLATIN
     Dosage: 80 MILLIGRAM, EVERY MONTH
     Route: 042
     Dates: start: 20230726, end: 20230921
  4. FLUOROURACIL [Suspect]
     Active Substance: FLUOROURACIL
     Indication: Oesophageal adenocarcinoma
     Dosage: 2000 MILLIGRAM (FREQUENCY: Q2S)
     Route: 042
     Dates: start: 20230726, end: 20240610
  5. FLUOROURACIL [Suspect]
     Active Substance: FLUOROURACIL
     Dosage: 1000 MILLIGRAM (FREQUENCY: Q2S)
     Route: 042
     Dates: start: 20230726
  6. OPDIVO [Suspect]
     Active Substance: NIVOLUMAB
     Indication: Oesophageal adenocarcinoma
     Dosage: 240 MILLIGRAM (FREQUENCY: Q2S/EVERY 2 WEEKS)
     Route: 042
     Dates: start: 20230726, end: 20231204
  7. TAMSULOSIN [Concomitant]
     Active Substance: TAMSULOSIN
     Indication: Product used for unknown indication
     Dosage: 0.4 MILLIGRAM, ONCE A DAY
     Route: 048
  8. GRANISETRON [Concomitant]
     Active Substance: GRANISETRON
     Indication: Prophylaxis
     Dosage: 1 MILLIGRAM, ONCE A DAY
     Route: 042
     Dates: start: 20230726, end: 20230730
  9. GRANISETRON [Concomitant]
     Active Substance: GRANISETRON
     Dosage: 1 MILLIGRAM, EVERY MONTH
     Route: 042
     Dates: start: 20230824
  10. DEXAMETHASONE [Concomitant]
     Active Substance: DEXAMETHASONE
     Indication: Prophylaxis
     Dosage: 8 MILLIGRAM, ONCE A DAY
     Route: 042
     Dates: start: 20230726, end: 20230730
  11. DEXAMETHASONE [Concomitant]
     Active Substance: DEXAMETHASONE
     Dosage: 8 MILLIGRAM, EVERY MONTH
     Route: 042
     Dates: start: 20230824
  12. PANTOPRAZOLE [Concomitant]
     Active Substance: PANTOPRAZOLE
     Indication: Prophylaxis
     Dosage: 40 MILLIGRAM, ONCE A DAY
     Route: 048
     Dates: start: 20230727
  13. METAMIZOLE [Concomitant]
     Active Substance: METAMIZOLE
     Indication: Product used for unknown indication
     Dosage: 1 GRAM, FOUR TIMES/DAY
     Route: 048
     Dates: start: 20230824, end: 20230920
  14. METAMIZOLE [Concomitant]
     Active Substance: METAMIZOLE
     Dosage: 500 MILLIGRAM, 0.13 DAY
     Route: 048
     Dates: start: 20231018
  15. DULOXETINE [Concomitant]
     Active Substance: DULOXETINE
     Indication: Product used for unknown indication
     Dosage: 30 MILLIGRAM, ONCE A DAY
     Route: 048
  16. OXYCODONE [Concomitant]
     Active Substance: OXYCODONE
     Indication: Product used for unknown indication
     Dosage: 5 MILLIGRAM, ONCE A DAY
     Route: 048
     Dates: start: 20230824
  17. PREGABALIN [Concomitant]
     Active Substance: PREGABALIN
     Indication: Product used for unknown indication
     Dosage: 150 MILLIGRAM, FOUR TIMES/DAY
     Route: 048
  18. PREGABALIN [Concomitant]
     Active Substance: PREGABALIN
     Dosage: 300 MILLIGRAM, TWO TIMES A DAY
     Route: 048
     Dates: end: 20230920
  19. PREGABALIN [Concomitant]
     Active Substance: PREGABALIN
     Dosage: 100 MILLIGRAM, TWO TIMES A DAY
     Route: 048
     Dates: start: 20230921, end: 20231004
  20. PREGABALIN [Concomitant]
     Active Substance: PREGABALIN
     Dosage: 200 MILLIGRAM, TWO TIMES A DAY
     Route: 048
     Dates: start: 20231005, end: 20231017
  21. PREGABALIN [Concomitant]
     Active Substance: PREGABALIN
     Dosage: 100 MILLIGRAM, 0.17 DAYS
     Route: 048
     Dates: start: 20231018
  22. OXYCODONE [Concomitant]
     Active Substance: OXYCODONE
     Indication: Product used for unknown indication
     Dosage: 20 MILLIGRAM, TWO TIMES A DAY
     Route: 048
     Dates: start: 20230726, end: 20230824
  23. OXYCODONE [Concomitant]
     Active Substance: OXYCODONE
     Dosage: 30 MILLIGRAM, TWO TIMES A DAY (RETARD)
     Route: 048
     Dates: start: 20230824, end: 20231030
  24. OXYCODONE [Concomitant]
     Active Substance: OXYCODONE
     Dosage: 40 MILLIGRAM, TWO TIMES A DAY (RETARD)
     Route: 048
     Dates: start: 20231031
  25. APREPITANT [Concomitant]
     Active Substance: APREPITANT
     Indication: Prophylaxis
     Dosage: 125 MILLIGRAM, EVERY MONTH
     Route: 042
     Dates: start: 20230726
  26. APREPITANT [Concomitant]
     Active Substance: APREPITANT
     Dosage: 80 MILLIGRAM, ONCE A DAY
     Route: 042
     Dates: start: 20230727

REACTIONS (12)
  - Tumour invasion [Unknown]
  - Nephropathy toxic [Recovered/Resolved]
  - Chest pain [Recovered/Resolved]
  - Weight decreased [Recovered/Resolved]
  - Stomatitis [Recovered/Resolved]
  - Eczema [Recovering/Resolving]
  - Oedema peripheral [Recovered/Resolved]
  - Umbilical hernia [Recovering/Resolving]
  - Abdominal pain upper [Recovered/Resolved]
  - Pruritus [Recovering/Resolving]
  - Micturition disorder [Recovered/Resolved]
  - Anaemia [Recovering/Resolving]

NARRATIVE: CASE EVENT DATE: 20230824
